FAERS Safety Report 18795608 (Version 2)
Quarter: 2021Q1

REPORT INFORMATION
  Report Type: Spontaneous
  Country: ES (occurrence: ES)
  Receive Date: 20210127
  Receipt Date: 20210130
  Transmission Date: 20210419
  Serious: Yes (Hospitalization, Other)
  Sender: FDA-Public Use
  Company Number: ES-SA-2020SA345663

PATIENT
  Age: 73 Year
  Sex: Female
  Weight: 76 kg

DRUGS (4)
  1. LANTUS [Suspect]
     Active Substance: INSULIN GLARGINE
     Indication: TYPE 2 DIABETES MELLITUS
     Dosage: 54 IU, UNK
     Route: 058
  2. LANTUS [Suspect]
     Active Substance: INSULIN GLARGINE
     Dosage: 6 IU, QD
     Route: 058
     Dates: start: 202011
  3. ACTRAPID [Concomitant]
     Active Substance: INSULIN HUMAN
     Indication: TYPE 2 DIABETES MELLITUS
     Dosage: 4 IU, QD (ADJUST AS PER REGIMEN)
     Route: 058
  4. INSULIN RAPID [Concomitant]
     Active Substance: INSULIN NOS
     Indication: TYPE 2 DIABETES MELLITUS
     Dosage: ACCORDING TO GUIDELINES
     Route: 058

REACTIONS (19)
  - Hip fracture [Unknown]
  - Tremor [Unknown]
  - Multiple use of single-use product [Unknown]
  - Parkinson^s disease [Unknown]
  - Fall [Recovered/Resolved]
  - Nervousness [Unknown]
  - Administration site pain [Recovered/Resolved]
  - Hypoglycaemia [Recovered/Resolved]
  - Dizziness [Unknown]
  - Fatigue [Unknown]
  - Blood pressure decreased [Recovered/Resolved]
  - Arthralgia [Unknown]
  - Contusion [Recovered/Resolved]
  - Hyperglycaemia [Recovering/Resolving]
  - Loss of personal independence in daily activities [Unknown]
  - Blood glucose increased [Unknown]
  - Speech disorder [Unknown]
  - Gait disturbance [Unknown]
  - Fall [Recovered/Resolved]

NARRATIVE: CASE EVENT DATE: 20200927
